FAERS Safety Report 9225527 (Version 1)
Quarter: 2013Q2

REPORT INFORMATION
  Report Type: Spontaneous
  Country: US (occurrence: None)
  Receive Date: 20130410
  Receipt Date: 20130410
  Transmission Date: 20140414
  Serious: Yes (Other)
  Sender: FDA-Public Use
  Company Number: None

PATIENT
  Age: 58 Year
  Sex: Male
  Weight: 88.4 kg

DRUGS (1)
  1. BRILINTA 90 MG TABS [Suspect]
     Route: 048
     Dates: start: 20130407, end: 20130407

REACTIONS (7)
  - Chest pain [None]
  - Dyspnoea [None]
  - Troponin increased [None]
  - Mental status changes [None]
  - Hemiparesis [None]
  - Subdural haematoma [None]
  - Subarachnoid haemorrhage [None]
